FAERS Safety Report 10484255 (Version 1)
Quarter: 2014Q3

REPORT INFORMATION
  Report Type: Spontaneous
  Country: US (occurrence: None)
  Receive Date: 20140926
  Receipt Date: 20140926
  Transmission Date: 20150326
  Serious: Yes (Hospitalization)
  Sender: FDA-Public Use
  Company Number: 2014RT000034

PATIENT
  Age: 27 Year
  Sex: Female
  Weight: 74.8 kg

DRUGS (1)
  1. PROCYSBI DELAYED-RELEASE [Suspect]
     Active Substance: CYSTEAMINE BITARTRATE
     Indication: CYSTINOSIS
     Route: 048

REACTIONS (14)
  - Malaise [None]
  - Frustration [None]
  - Drug hypersensitivity [None]
  - Skin odour abnormal [None]
  - Viral infection [None]
  - Renal transplant [None]
  - Fatigue [None]
  - Hypersomnia [None]
  - Feeling abnormal [None]
  - Dialysis [None]
  - Migraine [None]
  - Headache [None]
  - Asthenia [None]
  - Inappropriate schedule of drug administration [None]

NARRATIVE: CASE EVENT DATE: 20140511
